FAERS Safety Report 8762632 (Version 1)
Quarter: 2012Q4

REPORT INFORMATION
  Report Type: Report from Study
  Country: CA (occurrence: CA)
  Receive Date: 20120830
  Receipt Date: 20120830
  Transmission Date: 20130627
  Serious: Yes (Hospitalization)
  Sender: FDA-Public Use
  Company Number: CA-ROCHE-1061175

PATIENT
  Age: 57 Year
  Sex: Male

DRUGS (3)
  1. PEGASYS [Suspect]
     Indication: HEPATITIS C
     Route: 058
     Dates: start: 20120312, end: 20120415
  2. COPEGUS [Suspect]
     Indication: HEPATITIS C
     Dates: start: 20120312, end: 20120415
  3. INCIVEK [Concomitant]
     Indication: HEPATITIS C
     Route: 048
     Dates: start: 20120312, end: 20120415

REACTIONS (3)
  - Platelet count decreased [Not Recovered/Not Resolved]
  - Haemoglobin decreased [Not Recovered/Not Resolved]
  - Disorientation [Recovering/Resolving]
